FAERS Safety Report 9880016 (Version 2)
Quarter: 2014Q1

REPORT INFORMATION
  Report Type: Report from Study
  Country: DE (occurrence: DE)
  Receive Date: 20140207
  Receipt Date: 20140224
  Transmission Date: 20141002
  Serious: Yes (Hospitalization)
  Sender: FDA-Public Use
  Company Number: DE-ROCHE-1344087

PATIENT
  Age: 73 Year
  Sex: Female

DRUGS (12)
  1. TOCILIZUMAB [Suspect]
     Indication: RHEUMATOID ARTHRITIS
     Route: 065
     Dates: start: 201002
  2. METHOTREXAT [Suspect]
     Indication: RHEUMATOID ARTHRITIS
     Route: 065
     Dates: start: 201001
  3. METHOTREXAT [Suspect]
     Route: 065
     Dates: start: 200401, end: 200404
  4. METHOTREXAT [Suspect]
     Route: 065
     Dates: start: 200407, end: 200808
  5. PREDNISOLON [Concomitant]
     Indication: RHEUMATOID ARTHRITIS
     Route: 065
  6. HYDROCHLOROTHIAZIDE [Concomitant]
     Route: 065
  7. VOTUM (GERMANY) [Concomitant]
     Route: 065
  8. AMLODIPIN [Concomitant]
     Route: 065
  9. FOLIC ACID [Concomitant]
     Route: 065
  10. ARCOXIA [Concomitant]
     Route: 065
  11. NOVAMIN (AMIKACIN SULFATE) [Concomitant]
     Route: 065
  12. CALCILAC (GERMANY) [Concomitant]
     Route: 065

REACTIONS (2)
  - Pseudoradicular syndrome [Recovered/Resolved]
  - Intervertebral disc protrusion [Recovered/Resolved]
